FAERS Safety Report 25190191 (Version 1)
Quarter: 2025Q2

REPORT INFORMATION
  Report Type: Other
  Country: US (occurrence: US)
  Receive Date: 20250411
  Receipt Date: 20250411
  Transmission Date: 20250717
  Serious: Yes (Death, Hospitalization, Other)
  Sender: ALVOGEN
  Company Number: US-ALVOGEN-2025097135

PATIENT
  Sex: Male

DRUGS (4)
  1. FLECAINIDE [Suspect]
     Active Substance: FLECAINIDE
     Indication: Product used for unknown indication
     Route: 048
  2. METOPROLOL [Concomitant]
     Active Substance: METOPROLOL
     Indication: Product used for unknown indication
  3. ATORVASTATIN [Concomitant]
     Active Substance: ATORVASTATIN
     Indication: Product used for unknown indication
  4. COUMADIN [Concomitant]
     Active Substance: WARFARIN SODIUM
     Indication: Product used for unknown indication

REACTIONS (17)
  - Toxicity to various agents [Fatal]
  - Seizure [Unknown]
  - Atrial fibrillation [Unknown]
  - Mental status changes [Unknown]
  - Oxygen saturation decreased [Unknown]
  - Leukocytosis [Unknown]
  - Agitation [Unknown]
  - Cardiac arrest [Fatal]
  - Condition aggravated [Unknown]
  - Electrocardiogram QRS complex prolonged [Unknown]
  - Electrocardiogram QT prolonged [Unknown]
  - Ventricular tachycardia [Unknown]
  - Hypertension [Unknown]
  - Pyrexia [Unknown]
  - Bradycardia [Unknown]
  - Medication error [Unknown]
  - Accidental exposure to product [Unknown]
